FAERS Safety Report 17175781 (Version 1)
Quarter: 2019Q4

REPORT INFORMATION
  Report Type: Spontaneous
  Country: NL (occurrence: NL)
  Receive Date: 20191219
  Receipt Date: 20191219
  Transmission Date: 20200122
  Serious: Yes (Other)
  Sender: FDA-Public Use
  Company Number: NL-MYLANLABS-2019M1124840

PATIENT
  Age: 61 Year
  Sex: Female

DRUGS (1)
  1. BROMOCRIPTINE [Suspect]
     Active Substance: BROMOCRIPTINE
     Indication: PROLACTIN-PRODUCING PITUITARY TUMOUR
     Dosage: 7.5 MILLIGRAM, QD (2.5 MG, TID)
     Route: 065

REACTIONS (4)
  - Prolactin-producing pituitary tumour [Unknown]
  - Recurrent cancer [Unknown]
  - Hemianopia heteronymous [Unknown]
  - Hyperprolactinaemia [Unknown]
